FAERS Safety Report 6504618-1 (Version None)
Quarter: 2009Q4

REPORT INFORMATION
  Report Type: 
  Country: None (occurrence: None)
  Receive Date: 20091215
  Receipt Date: 20091203
  Transmission Date: 20100525
  Serious: Yes (Hospitalization, Other)
  Sender: FDA-Public Use
  Company Number: 2009AP004731

PATIENT
  Age: 70 Year
  Sex: Male

DRUGS (3)
  1. AMIODARONE HYDROCHLORIDE [Suspect]
     Indication: PROPHYLAXIS
     Dosage: 800 MG;QD;PO; 400 MG;QD;PO
     Route: 048
  2. LISINOPRIL [Concomitant]
  3. METOPROLOL TARTRATE [Concomitant]

REACTIONS (2)
  - ARTHRALGIA [None]
  - LEUKOCYTOCLASTIC VASCULITIS [None]
